FAERS Safety Report 22250813 (Version 2)
Quarter: 2023Q2

REPORT INFORMATION
  Report Type: Spontaneous
  Country: US (occurrence: None)
  Receive Date: 20230425
  Receipt Date: 20230601
  Transmission Date: 20230721
  Serious: Yes (Hospitalization)
  Sender: FDA-Public Use
  Company Number: 2023A090193

PATIENT
  Sex: Female
  Weight: 49 kg

DRUGS (3)
  1. PULMICORT FLEXHALER [Suspect]
     Active Substance: BUDESONIDE
     Indication: Chronic obstructive pulmonary disease
     Route: 055
     Dates: start: 2014
  2. PULMICORT FLEXHALER [Suspect]
     Active Substance: BUDESONIDE
     Indication: Chronic obstructive pulmonary disease
     Route: 055
  3. ALBUTEROL [Concomitant]
     Active Substance: ALBUTEROL

REACTIONS (9)
  - Herpes zoster [Unknown]
  - Dyspnoea [Unknown]
  - Visual impairment [Unknown]
  - Product taste abnormal [Unknown]
  - Drug ineffective [Unknown]
  - Off label use of device [Unknown]
  - Off label use [Unknown]
  - Product dose omission issue [Unknown]
  - Device use issue [Unknown]
